FAERS Safety Report 4745110-4 (Version None)
Quarter: 2005Q3

REPORT INFORMATION
  Report Type: 
  Country: None (occurrence: None)
  Receive Date: 20050812
  Receipt Date: 20050727
  Transmission Date: 20060218
  Serious: Yes (Life-Threatening, Hospitalization, Disabling)
  Sender: FDA-Public Use
  Company Number: 8009385

PATIENT
  Age: 15 Year
  Sex: Female

DRUGS (3)
  1. KEPPRA [Suspect]
     Indication: TEMPORAL LOBE EPILEPSY
     Dosage: 500 MG 3/D PO
     Route: 048
     Dates: start: 20040301, end: 20050101
  2. KEPPRA [Suspect]
     Indication: TEMPORAL LOBE EPILEPSY
     Dosage: 2000 MG PO
     Route: 048
  3. TRILEPTAL [Suspect]
     Indication: TEMPORAL LOBE EPILEPSY
     Dosage: 1200 MG /D PO
     Route: 048
     Dates: start: 20011001

REACTIONS (7)
  - ASTHENIA [None]
  - CONDITION AGGRAVATED [None]
  - CONVULSION [None]
  - DYSPNOEA [None]
  - DYSTONIA [None]
  - FALL [None]
  - MYASTHENIA GRAVIS [None]
